FAERS Safety Report 23781213 (Version 2)
Quarter: 2024Q2

REPORT INFORMATION
  Report Type: Spontaneous
  Country: JP (occurrence: JP)
  Receive Date: 20240425
  Receipt Date: 20240430
  Transmission Date: 20240716
  Serious: Yes (Other)
  Sender: FDA-Public Use
  Company Number: JP-MLMSERVICE-20240409-PI019072-00117-1

PATIENT
  Age: 72 Year
  Sex: Male
  Weight: 44 kg

DRUGS (7)
  1. DEXAMETHASONE [Interacting]
     Active Substance: DEXAMETHASONE
     Indication: Antiemetic supportive care
     Route: 042
  2. PALONOSETRON [Interacting]
     Active Substance: PALONOSETRON
     Indication: Antiemetic supportive care
     Route: 042
  3. FOSAPREPITANT [Interacting]
     Active Substance: FOSAPREPITANT
     Indication: Antiemetic supportive care
     Route: 042
  4. OXYCODONE [Interacting]
     Active Substance: OXYCODONE\OXYCODONE HYDROCHLORIDE
     Indication: Proctalgia
     Dosage: CONTINUOUS INFUSION PLUS BOLUS OF 1 HOUR QUANTITY AS A RESCUE DOSE
     Route: 040
  5. OXYCODONE [Interacting]
     Active Substance: OXYCODONE\OXYCODONE HYDROCHLORIDE
     Dosage: DOSE INCREASED
     Route: 040
  6. DEGARELIX [Concomitant]
     Active Substance: DEGARELIX
     Indication: Prostate cancer
     Route: 065
  7. ABIRATERONE [Concomitant]
     Active Substance: ABIRATERONE
     Indication: Prostate cancer
     Route: 065

REACTIONS (3)
  - Respiratory depression [Recovered/Resolved]
  - Drug interaction [Recovered/Resolved]
  - Sedation complication [Recovered/Resolved]
